FAERS Safety Report 11032638 (Version 4)
Quarter: 2015Q2

REPORT INFORMATION
  Report Type: Spontaneous
  Country: US (occurrence: US)
  Receive Date: 20150415
  Receipt Date: 20150604
  Transmission Date: 20150821
  Serious: Yes (Other)
  Sender: FDA-Public Use
  Company Number: PHHY2015US043655

PATIENT
  Sex: Female

DRUGS (8)
  1. BACLOFEN. [Suspect]
     Active Substance: BACLOFEN
     Indication: PRODUCT USED FOR UNKNOWN INDICATION
     Route: 048
  2. HYDROCODONE [Suspect]
     Active Substance: HYDROCODONE
     Indication: PRODUCT USED FOR UNKNOWN INDICATION
     Route: 065
  3. ATIVAN [Suspect]
     Active Substance: LORAZEPAM
     Indication: PRODUCT USED FOR UNKNOWN INDICATION
     Route: 065
  4. AMOXICILLIN. [Suspect]
     Active Substance: AMOXICILLIN
     Indication: PRODUCT USED FOR UNKNOWN INDICATION
     Route: 065
  5. PERIACTIN [Suspect]
     Active Substance: CYPROHEPTADINE HYDROCHLORIDE
     Indication: PRODUCT USED FOR UNKNOWN INDICATION
     Route: 065
  6. LIORESAL [Suspect]
     Active Substance: BACLOFEN
     Dosage: THERAPEUTIC BOLUSES WERE GIVEN
     Route: 037
  7. CITALOPRAM [Suspect]
     Active Substance: CITALOPRAM HYDROBROMIDE
     Indication: PRODUCT USED FOR UNKNOWN INDICATION
     Route: 065
  8. LIORESAL [Suspect]
     Active Substance: BACLOFEN
     Indication: MUSCLE SPASTICITY
     Dosage: 260 UG, QD
     Route: 037

REACTIONS (5)
  - Urinary tract infection [Unknown]
  - Drug withdrawal syndrome [Unknown]
  - Sedation [Unknown]
  - Muscle spasms [Unknown]
  - Malaise [Unknown]
